FAERS Safety Report 8051643-8 (Version None)
Quarter: 2012Q1

REPORT INFORMATION
  Report Type: 
  Country: None (occurrence: None)
  Receive Date: 20120118
  Receipt Date: 20120110
  Transmission Date: 20120608
  Serious: No
  Sender: FDA-Public Use
  Company Number: US-BIOGENIDEC-2011BI023369

PATIENT
  Sex: Female

DRUGS (3)
  1. TYSABRI [Suspect]
     Route: 042
     Dates: end: 20110221
  2. TYSABRI [Suspect]
     Indication: MULTIPLE SCLEROSIS
     Route: 042
     Dates: start: 20090423, end: 20100513
  3. TYSABRI [Suspect]
     Route: 042
     Dates: start: 20111205

REACTIONS (4)
  - INSOMNIA [None]
  - STRESS [None]
  - ALOPECIA [None]
  - MULTIPLE SCLEROSIS [None]
